FAERS Safety Report 7465845-2 (Version None)
Quarter: 2011Q2

REPORT INFORMATION
  Report Type: 
  Country: None (occurrence: None)
  Receive Date: 20110509
  Receipt Date: 20110505
  Transmission Date: 20111010
  Serious: Yes (Hospitalization)
  Sender: FDA-Public Use
  Company Number: US-ABBOTT-11P-163-0720245-00

PATIENT
  Sex: Male
  Weight: 69.462 kg

DRUGS (7)
  1. PENTASA [Concomitant]
     Indication: CROHN'S DISEASE
  2. PAIN MEDICINE [Concomitant]
     Indication: PRODUCT USED FOR UNKNOWN INDICATION
  3. KLONOPIN [Concomitant]
     Indication: ANXIETY
  4. KLONOPIN [Concomitant]
     Indication: STRESS
  5. PREDNISONE [Concomitant]
     Indication: CROHN'S DISEASE
  6. HUMIRA [Suspect]
     Indication: CROHN'S DISEASE
     Dates: start: 20110101
  7. NAUSEA MEDICINE [Concomitant]
     Indication: PRODUCT USED FOR UNKNOWN INDICATION

REACTIONS (2)
  - PYREXIA [None]
  - SMALL INTESTINAL OBSTRUCTION [None]
